FAERS Safety Report 8314893-9 (Version None)
Quarter: 2012Q2

REPORT INFORMATION
  Report Type: 
  Country: None (occurrence: None)
  Receive Date: 20120426
  Receipt Date: 20120418
  Transmission Date: 20120825
  Serious: Yes (Other)
  Sender: FDA-Public Use
  Company Number: US-JNJFOC-20120408489

PATIENT
  Sex: Female

DRUGS (5)
  1. PREVACID [Concomitant]
     Route: 065
  2. REMICADE [Suspect]
     Indication: CROHN'S DISEASE
     Route: 042
  3. FOLIC ACID [Concomitant]
     Route: 065
  4. CALCIUM [Concomitant]
     Route: 065
  5. M.V.I. [Concomitant]
     Dosage: MVI: MULTI VITAMIN CONCENTRATE
     Route: 065

REACTIONS (1)
  - HYPOAESTHESIA [None]
